FAERS Safety Report 10247802 (Version 1)
Quarter: 2014Q2

REPORT INFORMATION
  Report Type: Spontaneous
  Country: FR (occurrence: FR)
  Receive Date: 20140619
  Receipt Date: 20140619
  Transmission Date: 20141212
  Serious: Yes (Hospitalization)
  Sender: FDA-Public Use
  Company Number: FR-009507513-1406FRA008870

PATIENT
  Age: 47 Year
  Sex: Male

DRUGS (3)
  1. NASONEX [Suspect]
     Dosage: UNK
     Route: 045
     Dates: start: 20140407
  2. MAXILASE [Suspect]
     Dosage: UNK
     Route: 048
     Dates: start: 20140407
  3. AMOXICILLIN [Suspect]
     Dosage: UNK
     Route: 048
     Dates: start: 20140407

REACTIONS (2)
  - Rash [Recovering/Resolving]
  - Eosinophilia [Recovering/Resolving]
